FAERS Safety Report 9169616 (Version 2)
Quarter: 2013Q2

REPORT INFORMATION
  Report Type: Spontaneous
  Country: US (occurrence: US)
  Receive Date: 20130318
  Receipt Date: 20130621
  Transmission Date: 20140414
  Serious: No
  Sender: FDA-Public Use
  Company Number: US-009507513-1303USA008374

PATIENT
  Sex: Female

DRUGS (2)
  1. CHLOR-TRIMETON ALLERGY 4 HOUR TABLETS [Suspect]
     Indication: THROAT IRRITATION
     Dosage: UNK, UNKNOWN
     Route: 048
  2. CHLOR-TRIMETON ALLERGY 4 HOUR TABLETS [Suspect]
     Indication: RHINORRHOEA

REACTIONS (1)
  - Drug ineffective [Unknown]
